FAERS Safety Report 24397290 (Version 1)
Quarter: 2024Q4

REPORT INFORMATION
  Report Type: Spontaneous
  Country: US (occurrence: US)
  Receive Date: 20241004
  Receipt Date: 20241004
  Transmission Date: 20250115
  Serious: No
  Sender: SANOFI AVENTIS
  Company Number: US-SA-2024SA285846

PATIENT
  Age: 59 Year
  Sex: Female
  Weight: 74 kg

DRUGS (4)
  1. CABLIVI [Suspect]
     Active Substance: CAPLACIZUMAB-YHDP
     Indication: Microangiopathy
     Dosage: 11 MG, QD
     Route: 058
     Dates: start: 20240829
  2. CABLIVI [Suspect]
     Active Substance: CAPLACIZUMAB-YHDP
     Indication: Microangiopathy
     Dosage: 11 MG, QD
     Route: 058
     Dates: start: 20240829
  3. CABLIVI [Suspect]
     Active Substance: CAPLACIZUMAB-YHDP
     Indication: Microangiopathy
     Dosage: 11 MG, QD
     Route: 058
     Dates: start: 20240829
  4. CABLIVI [Suspect]
     Active Substance: CAPLACIZUMAB-YHDP
     Indication: Microangiopathy
     Dosage: 11 MG, QD
     Route: 058
     Dates: start: 20240829

REACTIONS (2)
  - ADAMTS13 activity abnormal [Unknown]
  - Product used for unknown indication [Unknown]

NARRATIVE: CASE EVENT DATE: 20240829
